FAERS Safety Report 7547276-X (Version None)
Quarter: 2011Q2

REPORT INFORMATION
  Report Type: 
  Country: None (occurrence: None)
  Receive Date: 20110614
  Receipt Date: 20110610
  Transmission Date: 20111010
  Serious: Yes (Death, Life-Threatening)
  Sender: FDA-Public Use
  Company Number: CA-PURDUE-CAN-2011-0001989

PATIENT
  Age: 48 Year
  Sex: Male

DRUGS (3)
  1. CLOZAPINE [Suspect]
     Indication: PRODUCT USED FOR UNKNOWN INDICATION
     Dosage: 800 MG, DAILY
     Route: 048
  2. OXYCONTIN [Suspect]
     Indication: PRODUCT USED FOR UNKNOWN INDICATION
  3. GRAVOL TAB [Suspect]
     Indication: PRODUCT USED FOR UNKNOWN INDICATION

REACTIONS (6)
  - ABDOMINAL DISTENSION [None]
  - NAUSEA [None]
  - HEADACHE [None]
  - ABDOMINAL PAIN [None]
  - TOXICITY TO VARIOUS AGENTS [None]
  - ANTIPSYCHOTIC DRUG LEVEL INCREASED [None]
